FAERS Safety Report 6592324-7 (Version None)
Quarter: 2010Q1

REPORT INFORMATION
  Report Type: 
  Country: None (occurrence: None)
  Receive Date: 20100221
  Receipt Date: 20090924
  Transmission Date: 20100710
  Serious: No
  Sender: FDA-Public Use
  Company Number: US-ALLERGAN-0913357US

PATIENT
  Age: 60 Year
  Sex: Female

DRUGS (4)
  1. BOTOX [Suspect]
     Indication: DENTAL CARE
  2. RESTYLANE [Suspect]
     Indication: DENTAL CARE
  3. PERLANE [Suspect]
     Indication: DENTAL CARE
  4. MOUTH WASH (UNSPECIFIED) [Suspect]

REACTIONS (1)
  - URTICARIA [None]
